FAERS Safety Report 12162514 (Version 9)
Quarter: 2017Q4

REPORT INFORMATION
  Report Type: Spontaneous
  Country: US (occurrence: US)
  Receive Date: 20160309
  Receipt Date: 20171010
  Transmission Date: 20180320
  Serious: Yes (Hospitalization, Other)
  Sender: FDA-Public Use
  Company Number: US-PFIZER INC-2016119770

PATIENT
  Age: 58 Year
  Sex: Male
  Weight: 141.7 kg

DRUGS (8)
  1. HYDROCODONE [Concomitant]
     Active Substance: HYDROCODONE
     Indication: PAIN IN EXTREMITY
     Dosage: 10 MG, 4X/DAY
     Route: 048
  2. ATORVASTATIN [Concomitant]
     Active Substance: ATORVASTATIN
     Indication: BLOOD CHOLESTEROL ABNORMAL
     Dosage: 20 MG, 1X/DAY
     Route: 048
  3. LYRICA [Suspect]
     Active Substance: PREGABALIN
     Indication: NEUROPATHY PERIPHERAL
     Dosage: 100 MG, 3X/DAY
     Route: 048
  4. LYRICA [Suspect]
     Active Substance: PREGABALIN
     Indication: DIABETIC NEUROPATHY
     Dosage: 300 MG, 3X/DAY
     Route: 048
  5. INSULIN [Concomitant]
     Active Substance: INSULIN NOS
     Indication: BLOOD GLUCOSE ABNORMAL
     Dosage: UNK
  6. LYRICA [Suspect]
     Active Substance: PREGABALIN
     Dosage: 200 MG, 3X/DAY
     Route: 048
     Dates: start: 2016
  7. METFORMIN [Concomitant]
     Active Substance: METFORMIN HYDROCHLORIDE
     Indication: BLOOD GLUCOSE ABNORMAL
     Dosage: UNK
  8. VICODIN [Concomitant]
     Active Substance: ACETAMINOPHEN\HYDROCODONE BITARTRATE
     Dosage: UNK

REACTIONS (20)
  - Sepsis [Unknown]
  - Osteomyelitis [Unknown]
  - Skin ulcer [Recovered/Resolved]
  - Accident [Unknown]
  - Gait disturbance [Unknown]
  - Condition aggravated [Recovered/Resolved]
  - Pain in extremity [Unknown]
  - Ulcer [Unknown]
  - Overdose [Unknown]
  - Skin injury [Unknown]
  - Movement disorder [Unknown]
  - Nerve compression [Unknown]
  - Weight decreased [Unknown]
  - Blister [Unknown]
  - Neuralgia [Unknown]
  - Fall [Unknown]
  - Condition aggravated [Unknown]
  - Back disorder [Unknown]
  - Diabetes mellitus [Unknown]
  - Nightmare [Unknown]

NARRATIVE: CASE EVENT DATE: 20160615
